FAERS Safety Report 19489446 (Version 1)
Quarter: 2021Q3

REPORT INFORMATION
  Report Type: Spontaneous
  Country: DE (occurrence: DE)
  Receive Date: 20210703
  Receipt Date: 20210703
  Transmission Date: 20211014
  Serious: Yes (Hospitalization)
  Sender: FDA-Public Use
  Company Number: DE-TEVA-2021-DE-1928349

PATIENT
  Age: 59 Year
  Sex: Male
  Weight: 70 kg

DRUGS (3)
  1. RISPERIDON [Suspect]
     Active Substance: RISPERIDONE
     Dosage: 0.5 MG
     Route: 048
  2. LEVETIRACETAM. [Suspect]
     Active Substance: LEVETIRACETAM
     Dosage: 1250 UG
     Route: 048
  3. MIRTAZAPIN [Suspect]
     Active Substance: MIRTAZAPINE
     Dosage: 15 MG
     Route: 048

REACTIONS (3)
  - Seizure [Unknown]
  - General physical health deterioration [Not Recovered/Not Resolved]
  - Depressed mood [Not Recovered/Not Resolved]
